FAERS Safety Report 6370585-7 (Version None)
Quarter: 2009Q3

REPORT INFORMATION
  Report Type: 
  Country: None (occurrence: None)
  Receive Date: 20090923
  Receipt Date: 20090917
  Transmission Date: 20100115
  Serious: Yes (Life-Threatening, Hospitalization)
  Sender: FDA-Public Use
  Company Number: B0593885A

PATIENT
  Age: 19 Year
  Sex: Female

DRUGS (2)
  1. AUGMENTIN '125' [Suspect]
     Indication: DRUG USE FOR UNKNOWN INDICATION
     Dosage: 2G SINGLE DOSE
     Route: 042
     Dates: start: 20081201, end: 20081201
  2. UNKNOWN ANESTHETIC [Concomitant]
     Route: 065
     Dates: start: 20081201, end: 20081201

REACTIONS (1)
  - ANAPHYLACTOID SHOCK [None]
